FAERS Safety Report 6168202-4 (Version None)
Quarter: 2009Q2

REPORT INFORMATION
  Report Type: 
  Country: None (occurrence: None)
  Receive Date: 20090427
  Receipt Date: 20090422
  Transmission Date: 20091009
  Serious: Yes (Life-Threatening, Hospitalization, Other)
  Sender: FDA-Public Use
  Company Number: PHHY2008JP17795

PATIENT
  Sex: Female

DRUGS (4)
  1. GLEEVEC [Suspect]
     Indication: GASTROINTESTINAL STROMAL TUMOUR
     Dosage: 400 MG/DAY
     Route: 048
     Dates: start: 20080712
  2. GLEEVEC [Suspect]
     Indication: METASTASES TO LIVER
  3. RIBALL [Concomitant]
     Dosage: 100 MG/DAY
     Route: 048
     Dates: start: 20080718
  4. LUPRAC [Concomitant]
     Indication: OEDEMA
     Dosage: 4 MG/DAY
     Route: 048
     Dates: start: 20080724

REACTIONS (15)
  - ABDOMINAL PAIN UPPER [None]
  - ARTERIAL THROMBOSIS LIMB [None]
  - COAGULATION FACTOR DECREASED [None]
  - DECREASED APPETITE [None]
  - DISSEMINATED INTRAVASCULAR COAGULATION [None]
  - DUODENAL ULCER HAEMORRHAGE [None]
  - FIBRIN DEGRADATION PRODUCTS INCREASED [None]
  - GENERALISED OEDEMA [None]
  - HAEMATEMESIS [None]
  - HAEMOSTASIS [None]
  - NAUSEA [None]
  - PAIN IN EXTREMITY [None]
  - PLATELET COUNT DECREASED [None]
  - SMALL INTESTINAL HAEMORRHAGE [None]
  - TUMOUR LYSIS SYNDROME [None]
